APPROVED DRUG PRODUCT: AMIKACIN SULFATE
Active Ingredient: AMIKACIN SULFATE
Strength: EQ 50MG BASE/ML
Dosage Form/Route: INJECTABLE;INJECTION
Application: A205605 | Product #001
Applicant: FRESENIUS KABI USA LLC
Approved: Dec 9, 2015 | RLD: No | RS: No | Type: DISCN